FAERS Safety Report 5087912-3 (Version None)
Quarter: 2006Q3

REPORT INFORMATION
  Report Type: 
  Country: None (occurrence: None)
  Receive Date: 20060821
  Receipt Date: 20060804
  Transmission Date: 20061208
  Serious: Yes (Hospitalization)
  Sender: FDA-Public Use
  Company Number: DSA_61051_2006

PATIENT
  Age: 6 Year
  Sex: Female
  Weight: 18.1439 kg

DRUGS (1)
  1. DIASTAT [Suspect]
     Indication: EPILEPSY
     Dosage: 10 MG PRN RC
     Dates: start: 20020101

REACTIONS (4)
  - DRUG INEFFECTIVE [None]
  - INCORRECT DOSE ADMINISTERED [None]
  - MEDICATION ERROR [None]
  - PHARMACEUTICAL PRODUCT COMPLAINT [None]
